FAERS Safety Report 9542495 (Version 1)
Quarter: 2013Q3

REPORT INFORMATION
  Report Type: Spontaneous
  Country: US (occurrence: None)
  Receive Date: 20130918
  Receipt Date: 20130918
  Transmission Date: 20140515
  Serious: Yes (Other)
  Sender: FDA-Public Use
  Company Number: AUR-APL-2013-07625

PATIENT
  Age: 67 Year
  Sex: Female

DRUGS (2)
  1. ALENDRONIC ACID (ALENDRONIC ACID) [Suspect]
     Route: 048
     Dates: start: 201309, end: 201309
  2. CALCIUM (CALCIUM) [Concomitant]

REACTIONS (2)
  - Loss of consciousness [None]
  - Rash [None]
